FAERS Safety Report 26020647 (Version 1)
Quarter: 2025Q4

REPORT INFORMATION
  Report Type: Spontaneous
  Country: GB (occurrence: GB)
  Receive Date: 20251110
  Receipt Date: 20251110
  Transmission Date: 20260118
  Serious: Yes (Other)
  Sender: ALKEM
  Company Number: None

PATIENT
  Age: 49 Year
  Sex: Female
  Weight: 49 kg

DRUGS (2)
  1. VARENICLINE [Suspect]
     Active Substance: VARENICLINE
     Indication: Cerebellar tumour
     Dosage: UNK
     Route: 065
  2. CABERGOLINE [Concomitant]
     Active Substance: CABERGOLINE
     Indication: Brain neoplasm
     Dosage: UNK
     Route: 065

REACTIONS (3)
  - Confusional state [Recovered/Resolved]
  - Nausea [Recovered/Resolved]
  - Fatigue [Recovered/Resolved]

NARRATIVE: CASE EVENT DATE: 20251003
